FAERS Safety Report 12188115 (Version 10)
Quarter: 2016Q3

REPORT INFORMATION
  Report Type: Spontaneous
  Country: CN (occurrence: CN)
  Receive Date: 20160317
  Receipt Date: 20160712
  Transmission Date: 20161109
  Serious: Yes (Other)
  Sender: FDA-Public Use
  Company Number: CN-009507513-1412CHN000214

PATIENT
  Age: 65 Year
  Sex: Female
  Weight: 46 kg

DRUGS (24)
  1. SODIUM BICARBONATE. [Concomitant]
     Active Substance: SODIUM BICARBONATE
     Indication: ELECTROLYTE IMBALANCE
     Dosage: 250ML/CC, ONCE
     Route: 041
     Dates: start: 20141109, end: 20141109
  2. PYRIDOXINE [Concomitant]
     Active Substance: PYRIDOXINE
     Indication: IMMUNE ENHANCEMENT THERAPY
     Dosage: 2 ML/CC, ONCE
     Route: 041
     Dates: start: 20141109, end: 20141109
  3. MANNITOL. [Concomitant]
     Active Substance: MANNITOL
     Indication: POLYURIA
     Dosage: 250 ML/CC ,QD
     Route: 041
     Dates: start: 20141108, end: 20141109
  4. VITAMINS (UNSPECIFIED) [Concomitant]
     Active Substance: VITAMINS
     Dosage: 215 MG, QD
     Route: 041
     Dates: start: 20141106, end: 20141111
  5. EMEND [Suspect]
     Active Substance: APREPITANT
     Indication: PROPHYLAXIS OF NAUSEA AND VOMITING
     Dosage: 125 MG, ONCE, DAY 1
     Route: 048
     Dates: start: 20141108, end: 20141108
  6. EMEND [Suspect]
     Active Substance: APREPITANT
     Dosage: 80 MG, ONCE, DAY 3
     Route: 048
     Dates: start: 20141110, end: 20141110
  7. CIMETIDINE [Concomitant]
     Active Substance: CIMETIDINE
     Indication: PROPHYLAXIS
     Dosage: 0.4 G, ONCE
     Route: 041
     Dates: start: 20141107, end: 20141107
  8. DEXAMETHASONE SODIUM PHOSPHATE. [Concomitant]
     Active Substance: DEXAMETHASONE SODIUM PHOSPHATE
     Indication: PROPHYLAXIS OF NAUSEA AND VOMITING
     Dosage: 5 MG, QD
     Route: 041
     Dates: start: 20141107, end: 20141107
  9. DEXAMETHASONE SODIUM PHOSPHATE. [Concomitant]
     Active Substance: DEXAMETHASONE SODIUM PHOSPHATE
     Dosage: 5 MG, QD
     Route: 041
     Dates: start: 20141108, end: 20141109
  10. POTASSIUM ASPARTATE [Concomitant]
     Active Substance: POTASSIUM ASPARTATE
     Indication: ELECTROLYTE SUBSTITUTION THERAPY
     Dosage: 10 ML/CC, ONCE
     Route: 041
     Dates: start: 20141109, end: 20141109
  11. BO ZHI TANG TAI ZHU SHE YE [Concomitant]
     Dosage: 10 MG, BID
     Route: 041
     Dates: start: 20141107, end: 20141109
  12. TORSEMIDE. [Concomitant]
     Active Substance: TORSEMIDE
     Indication: DIURETIC THERAPY
     Dosage: 20 MG, QD
     Route: 042
     Dates: start: 20141108, end: 20141109
  13. ASCORBIC ACID. [Concomitant]
     Active Substance: ASCORBIC ACID
     Indication: APPETITE DISORDER
     Dosage: 5 ML/CC, ONCE
     Route: 041
     Dates: start: 20141109, end: 20141109
  14. EMEND [Suspect]
     Active Substance: APREPITANT
     Dosage: 80 MG, ONCE, DAY 2
     Route: 048
     Dates: start: 20141109, end: 20141109
  15. CISPLATIN. [Concomitant]
     Active Substance: CISPLATIN
     Indication: CHEMOTHERAPY
     Dosage: 90 MG,  TREATMENT CYCLE: 1, REGIMEN: TP
     Route: 041
     Dates: start: 20141108, end: 20141108
  16. LANSOPRAZOLE. [Concomitant]
     Active Substance: LANSOPRAZOLE
     Indication: PROPHYLAXIS
     Dosage: 30 MG, QD
     Route: 041
     Dates: start: 20141106, end: 20141111
  17. BO ZHI TANG TAI ZHU SHE YE [Concomitant]
     Indication: NUTRITIONAL SUPPLEMENTATION
     Dosage: 10 MG, BID
     Route: 041
     Dates: start: 20141101, end: 20141103
  18. DIPHENHYDRAMINE HYDROCHLORIDE. [Concomitant]
     Active Substance: DIPHENHYDRAMINE HYDROCHLORIDE
     Indication: PROPHYLAXIS OF NAUSEA AND VOMITING
     Dosage: 40 MG, ONCE
     Route: 030
     Dates: start: 20141107, end: 20141107
  19. PALONOSETRON HYDROCHLORIDE. [Concomitant]
     Active Substance: PALONOSETRON HYDROCHLORIDE
     Dosage: 0.25 MG, QD
     Route: 041
     Dates: start: 20141108
  20. MONOSIALOGANGLIOSIDE SODIUM [Concomitant]
     Indication: NERVOUS SYSTEM DISORDER
     Dosage: 40 MG, QD
     Route: 041
     Dates: start: 20141107, end: 20141109
  21. PACLITAXEL. [Concomitant]
     Active Substance: PACLITAXEL
     Indication: CHEMOTHERAPY
     Dosage: 210 MG, UNK,  TREATMENT CYCLE: 1, REGIMEN: TP
     Route: 041
     Dates: start: 20141107, end: 20141108
  22. MANNITOL. [Concomitant]
     Active Substance: MANNITOL
     Indication: DEHYDRATION
  23. VITAMINS (UNSPECIFIED) [Concomitant]
     Active Substance: VITAMINS
     Indication: VITAMIN SUPPLEMENTATION
     Dosage: 215 MG, QD
     Route: 041
     Dates: start: 20141101, end: 20141103
  24. PALONOSETRON HYDROCHLORIDE. [Concomitant]
     Active Substance: PALONOSETRON HYDROCHLORIDE
     Indication: PROPHYLAXIS OF NAUSEA AND VOMITING
     Dosage: 0.25 MG, QD
     Route: 042
     Dates: start: 20141107, end: 20141107

REACTIONS (3)
  - Chest pain [Recovered/Resolved]
  - Renal impairment [Unknown]
  - Oliguria [Recovered/Resolved]

NARRATIVE: CASE EVENT DATE: 20141109
